FAERS Safety Report 4837831-X (Version None)
Quarter: 2005Q4

REPORT INFORMATION
  Report Type: 
  Country: None (occurrence: None)
  Receive Date: 20051128
  Receipt Date: 20051118
  Transmission Date: 20060501
  Serious: Yes (Hospitalization, Other)
  Sender: FDA-Public Use
  Company Number: US-MERCK-0511USA03495

PATIENT
  Age: 74 Year
  Sex: Male
  Weight: 98 kg

DRUGS (7)
  1. VIOXX [Suspect]
     Route: 048
     Dates: start: 20030923, end: 20031201
  2. PRAZOSIN [Concomitant]
     Route: 065
  3. INDAPAMIDE [Concomitant]
     Route: 065
  4. ATENOLOL [Concomitant]
     Route: 065
  5. GLUCOPHAGE [Concomitant]
     Route: 065
  6. ACTONEL [Concomitant]
     Route: 065
  7. ACTOS [Concomitant]
     Route: 065

REACTIONS (5)
  - ARTHROPATHY [None]
  - CEREBROVASCULAR ACCIDENT [None]
  - COORDINATION ABNORMAL [None]
  - HIP ARTHROPLASTY [None]
  - VISUAL ACUITY REDUCED [None]
